FAERS Safety Report 16197523 (Version 1)
Quarter: 2019Q2

REPORT INFORMATION
  Report Type: Spontaneous
  Country: FR (occurrence: FR)
  Receive Date: 20190415
  Receipt Date: 20190415
  Transmission Date: 20190711
  Serious: Yes (Hospitalization)
  Sender: FDA-Public Use
  Company Number: FR-BEH-2012032293

PATIENT
  Age: 59 Year
  Sex: Female

DRUGS (9)
  1. LEVOTHYROX [Concomitant]
     Active Substance: LEVOTHYROXINE
     Route: 065
  2. MICROPAKINE [Concomitant]
     Active Substance: VALPROATE SODIUM
     Route: 065
  3. BERINERT [Suspect]
     Active Substance: HUMAN C1-ESTERASE INHIBITOR
     Dosage: UNK
     Route: 065
     Dates: start: 20110315
  4. LYSANXIA [Concomitant]
     Active Substance: PRAZEPAM
     Route: 065
  5. ATACAND [Concomitant]
     Active Substance: CANDESARTAN CILEXETIL
     Route: 065
  6. BRICANYL [Concomitant]
     Active Substance: TERBUTALINE SULFATE
     Route: 065
  7. BERINERT [Suspect]
     Active Substance: HUMAN C1-ESTERASE INHIBITOR
     Indication: STENT PLACEMENT
     Dosage: 1000 IU, TOT
     Route: 042
     Dates: start: 20120123, end: 20120123
  8. ZARONTIN [Concomitant]
     Active Substance: ETHOSUXIMIDE
     Route: 065
  9. ATROVENT [Concomitant]
     Active Substance: IPRATROPIUM BROMIDE
     Route: 065

REACTIONS (3)
  - Venous thrombosis [Unknown]
  - Oedema peripheral [Unknown]
  - Phlebitis [Unknown]

NARRATIVE: CASE EVENT DATE: 201201
